FAERS Safety Report 7719419-6 (Version None)
Quarter: 2011Q3

REPORT INFORMATION
  Report Type: 
  Country: None (occurrence: None)
  Receive Date: 20110830
  Receipt Date: 20110819
  Transmission Date: 20111222
  Serious: Yes (Other)
  Sender: FDA-Public Use
  Company Number: PHHY2011BE75932

PATIENT
  Age: 4 Month
  Sex: Male

DRUGS (1)
  1. METHERGINE [Suspect]
     Dosage: 2 X 2 DRP, UNK
     Dates: start: 20060101

REACTIONS (2)
  - WRONG DRUG ADMINISTERED [None]
  - AGITATION [None]
